FAERS Safety Report 20860773 (Version 4)
Quarter: 2022Q3

REPORT INFORMATION
  Report Type: Spontaneous
  Country: US (occurrence: US)
  Receive Date: 20220523
  Receipt Date: 20220809
  Transmission Date: 20221027
  Serious: No
  Sender: FDA-Public Use
  Company Number: US-BRISTOL-MYERS SQUIBB COMPANY-2022-035167

PATIENT
  Age: 73 Year
  Sex: Male

DRUGS (2)
  1. REVLIMID [Suspect]
     Active Substance: LENALIDOMIDE
     Indication: Prostate cancer
     Dosage: FREQUENCY : TAKE 1 CAPSULE BY MOUTH EVERYDAY FOR 21 DAYS AND 7 DAYS OFF ^
     Route: 048
     Dates: start: 20220418
  2. REVLIMID [Suspect]
     Active Substance: LENALIDOMIDE
     Dosage: EVERY DAY FOR 21 DAYS AND THEN 7 DAYS OFF
     Route: 048
     Dates: start: 20220418

REACTIONS (6)
  - Diarrhoea [Not Recovered/Not Resolved]
  - Hot flush [Recovering/Resolving]
  - Rash macular [Recovering/Resolving]
  - Pruritus [Not Recovered/Not Resolved]
  - Intentional product use issue [Unknown]
  - Hypersensitivity [Unknown]
